FAERS Safety Report 8997423 (Version 1)
Quarter: 2013Q1

REPORT INFORMATION
  Report Type: Spontaneous
  Country: US (occurrence: US)
  Receive Date: 20130104
  Receipt Date: 20130104
  Transmission Date: 20140127
  Serious: No
  Sender: FDA-Public Use
  Company Number: US-PFIZER INC-2013002098

PATIENT
  Sex: Male

DRUGS (1)
  1. REVATIO [Suspect]
     Indication: PULMONARY HYPERTENSION
     Dosage: UNK, 3X/DAY
     Dates: start: 201212

REACTIONS (2)
  - Inappropriate affect [Unknown]
  - Therapeutic response unexpected [Unknown]
